FAERS Safety Report 10313219 (Version 1)
Quarter: 2014Q3

REPORT INFORMATION
  Report Type: Spontaneous
  Country: GB (occurrence: None)
  Receive Date: 20140716
  Receipt Date: 20140716
  Transmission Date: 20150326
  Serious: Yes (Other)
  Sender: FDA-Public Use
  Company Number: AUR-APL-2014-07178

PATIENT
  Age: 53 Year
  Sex: Female
  Weight: 81.3 kg

DRUGS (2)
  1. NAPROXEN ( NAPROXEN) UNKNOWN [Suspect]
     Active Substance: NAPROXEN
     Indication: PRODUCT USED FOR UNKNOWN INDICATION
     Route: 048
     Dates: start: 20140623, end: 20140623
  2. FEXOFENADINE ( FEXOFENADINE) [Concomitant]

REACTIONS (1)
  - Lip swelling [None]

NARRATIVE: CASE EVENT DATE: 20140623
